FAERS Safety Report 5078261-8 (Version None)
Quarter: 2006Q3

REPORT INFORMATION
  Report Type: 
  Country: None (occurrence: None)
  Receive Date: 20060811
  Receipt Date: 20060803
  Transmission Date: 20061208
  Serious: Yes (Other)
  Sender: FDA-Public Use
  Company Number: US-ROCHE-458467

PATIENT
  Sex: Female

DRUGS (2)
  1. PEGASYS [Suspect]
     Route: 065
     Dates: start: 20060706
  2. COPEGUS [Suspect]
     Route: 048
     Dates: start: 20060706

REACTIONS (1)
  - LYMPHOCYTE COUNT INCREASED [None]
